FAERS Safety Report 5811074-5 (Version None)
Quarter: 2008Q3

REPORT INFORMATION
  Report Type: 
  Country: None (occurrence: None)
  Receive Date: 20080710
  Receipt Date: 20080611
  Transmission Date: 20090109
  Serious: Yes (Hospitalization)
  Sender: FDA-Public Use
  Company Number: 2008S1010026

PATIENT
  Age: 9 Year
  Sex: Female

DRUGS (8)
  1. PHENYTOIN [Suspect]
     Indication: PROPHYLAXIS
  2. HYDROXYCARBAMIDE (PREV.) [Concomitant]
  3. CICLOSPORIN (CON.) [Concomitant]
  4. TACROLIMUS (CON.) [Concomitant]
  5. FLUCONAZOLE (CON.) [Concomitant]
  6. BUSULFAN (CON.) [Concomitant]
  7. FLUDARABINE (CON.) [Concomitant]
  8. ATG /00575401/ (CON.) [Concomitant]

REACTIONS (5)
  - DRUG RASH WITH EOSINOPHILIA AND SYSTEMIC SYMPTOMS [None]
  - DRUG TOXICITY [None]
  - GRAFT VERSUS HOST DISEASE [None]
  - HEPATITIS [None]
  - TRANSPLANT FAILURE [None]
